FAERS Safety Report 18237848 (Version 1)
Quarter: 2020Q3

REPORT INFORMATION
  Report Type: Spontaneous
  Country: JP (occurrence: JP)
  Receive Date: 20200907
  Receipt Date: 20200907
  Transmission Date: 20201103
  Serious: Yes (Hospitalization, Other)
  Sender: FDA-Public Use
  Company Number: JP-VISTAPHARM, INC.-VER202008-001487

PATIENT
  Sex: Male
  Weight: 2.4 kg

DRUGS (5)
  1. DISOPYRAMIDE [Concomitant]
     Active Substance: DISOPYRAMIDE
     Indication: ATRIAL TACHYCARDIA
     Dosage: 1 MG/KG
     Route: 042
  2. DIGOXIN. [Suspect]
     Active Substance: DIGOXIN
     Indication: ATRIAL TACHYCARDIA
     Dosage: 0.004 MG/KG
     Route: 042
  3. ADENOSINE TRIPHOSPHATE [Concomitant]
     Active Substance: ADENOSINE TRIPHOSPHATE
     Indication: ATRIAL TACHYCARDIA
     Dosage: 0.1 MG/KG
     Route: 042
  4. APRINDINE [Concomitant]
     Active Substance: APRINDINE
     Dosage: 0.5 MG/KG/DAY
     Route: 048
  5. APRINDINE [Concomitant]
     Active Substance: APRINDINE
     Indication: ATRIAL TACHYCARDIA
     Dosage: 1.5 MG/KG/DAY
     Route: 048

REACTIONS (5)
  - Pleural effusion [Unknown]
  - Acute respiratory distress syndrome [Unknown]
  - Bradycardia foetal [Recovered/Resolved]
  - Foetal exposure during pregnancy [Unknown]
  - Drug ineffective for unapproved indication [Unknown]
